FAERS Safety Report 20549618 (Version 4)
Quarter: 2022Q2

REPORT INFORMATION
  Report Type: Report from Study
  Country: US (occurrence: US)
  Receive Date: 20220304
  Receipt Date: 20220524
  Transmission Date: 20220720
  Serious: Yes (Other)
  Sender: FDA-Public Use
  Company Number: US-BIOVITRUM-2021US12840

PATIENT
  Age: 37 Year
  Sex: Female

DRUGS (1)
  1. KINERET [Suspect]
     Active Substance: ANAKINRA
     Indication: Still^s disease
     Route: 058
     Dates: start: 20210616

REACTIONS (9)
  - Still^s disease [Unknown]
  - Condition aggravated [Unknown]
  - COVID-19 [Unknown]
  - Illness [Unknown]
  - Frustration tolerance decreased [Unknown]
  - Injection site erythema [Unknown]
  - Injection site pruritus [Unknown]
  - Product dose omission issue [Unknown]
  - Off label use [Unknown]

NARRATIVE: CASE EVENT DATE: 20210616
